FAERS Safety Report 16260059 (Version 2)
Quarter: 2019Q3

REPORT INFORMATION
  Report Type: Spontaneous
  Country: US (occurrence: US)
  Receive Date: 20190501
  Receipt Date: 20190716
  Transmission Date: 20191004
  Serious: Yes (Other)
  Sender: FDA-Public Use
  Company Number: US-GLAXOSMITHKLINE-US2019GSK077987

PATIENT
  Sex: Female

DRUGS (3)
  1. OMEPRAZOLE. [Suspect]
     Active Substance: OMEPRAZOLE
     Indication: GASTROOESOPHAGEAL REFLUX DISEASE
     Dosage: 20 MG, QD
     Route: 048
  2. PREVACID [Suspect]
     Active Substance: LANSOPRAZOLE
     Indication: GASTROOESOPHAGEAL REFLUX DISEASE
     Dosage: 20 MG, QD
     Route: 065
  3. OMEPRAZOLE. [Suspect]
     Active Substance: OMEPRAZOLE
     Dosage: 20 MG, BID
     Route: 048

REACTIONS (10)
  - Renal impairment [Unknown]
  - Urate nephropathy [Unknown]
  - Chronic kidney disease [Not Recovered/Not Resolved]
  - Ischaemic nephropathy [Unknown]
  - Renal failure [Unknown]
  - Nocturia [Unknown]
  - Tubulointerstitial nephritis [Unknown]
  - Pyelonephritis [Unknown]
  - Pollakiuria [Unknown]
  - Microalbuminuria [Unknown]
